FAERS Safety Report 7021617-4 (Version None)
Quarter: 2010Q3

REPORT INFORMATION
  Report Type: 
  Country: None (occurrence: None)
  Receive Date: 20100928
  Receipt Date: 20100923
  Transmission Date: 20110219
  Serious: Yes (Death)
  Sender: FDA-Public Use
  Company Number: 2010SP048988

PATIENT
  Age: 64 Year
  Sex: Female

DRUGS (3)
  1. TEMOZOLOMIDE [Suspect]
     Indication: GLIOBLASTOMA MULTIFORME
     Dosage: 140 MG; 280 MG; QD;  340 MG; QD
     Dates: start: 20090715, end: 20090825
  2. TEMOZOLOMIDE [Suspect]
     Indication: GLIOBLASTOMA MULTIFORME
     Dosage: 140 MG; 280 MG; QD;  340 MG; QD
     Dates: start: 20090923, end: 20090927
  3. TEMOZOLOMIDE [Suspect]
     Indication: GLIOBLASTOMA MULTIFORME
     Dosage: 140 MG; 280 MG; QD;  340 MG; QD
     Dates: start: 20091103, end: 20091106

REACTIONS (17)
  - ARRHYTHMIA [None]
  - ASTHENIA [None]
  - CONVULSION [None]
  - DISORIENTATION [None]
  - DYSPNOEA [None]
  - HYPOCAPNIA [None]
  - LUNG DISORDER [None]
  - MENTAL DISORDER [None]
  - NERVOUS SYSTEM DISORDER [None]
  - PANCYTOPENIA [None]
  - PNEUMONIA KLEBSIELLA [None]
  - RESPIRATORY FAILURE [None]
  - SEPSIS [None]
  - SLUGGISHNESS [None]
  - SPUTUM CULTURE POSITIVE [None]
  - SUPRAVENTRICULAR TACHYCARDIA [None]
  - TACHYCARDIA [None]
